FAERS Safety Report 9176430 (Version 1)
Quarter: 2013Q1

REPORT INFORMATION
  Report Type: Spontaneous
  Country: DE (occurrence: DE)
  Receive Date: 20130321
  Receipt Date: 20130321
  Transmission Date: 20140127
  Serious: Yes (Hospitalization)
  Sender: FDA-Public Use
  Company Number: DE-RANBAXY-2013R1-66337

PATIENT
  Age: 34 Year
  Sex: Female
  Weight: 87 kg

DRUGS (1)
  1. AMOXICILLINE [Suspect]
     Indication: ACUTE TONSILLITIS
     Dosage: 1000 MG, TID
     Route: 048
     Dates: start: 20121102, end: 20121108

REACTIONS (1)
  - Drug eruption [Not Recovered/Not Resolved]
